FAERS Safety Report 10405885 (Version 2)
Quarter: 2014Q4

REPORT INFORMATION
  Report Type: Spontaneous
  Country: US (occurrence: US)
  Receive Date: 20140825
  Receipt Date: 20141103
  Transmission Date: 20150528
  Serious: No
  Sender: FDA-Public Use
  Company Number: US-ELI_LILLY_AND_COMPANY-US201407010643

PATIENT
  Sex: Male
  Weight: 136.5 kg

DRUGS (7)
  1. HUMALOG [Suspect]
     Active Substance: INSULIN LISPRO
     Dosage: UNK
     Route: 065
     Dates: start: 2012
  2. VICTOZA [Concomitant]
     Active Substance: LIRAGLUTIDE
  3. HUMALOG [Suspect]
     Active Substance: INSULIN LISPRO
     Indication: DIABETES MELLITUS
     Dosage: 50 U, EACH MORNING
     Route: 065
     Dates: start: 2012
  4. HUMALOG [Suspect]
     Active Substance: INSULIN LISPRO
     Dosage: 60 U, QD
     Route: 065
     Dates: start: 2012
  5. HUMALOG [Suspect]
     Active Substance: INSULIN LISPRO
     Dosage: 65 U, EACH EVENING
     Route: 065
     Dates: start: 2012
  6. LEVEMIR [Concomitant]
     Active Substance: INSULIN DETEMIR
  7. WARFARIN [Concomitant]
     Active Substance: WARFARIN

REACTIONS (5)
  - Abdominal discomfort [Unknown]
  - Drug dose omission [Unknown]
  - Blood glucose increased [Unknown]
  - Weight loss poor [Unknown]
  - Contusion [Unknown]
